FAERS Safety Report 6815787-8 (Version None)
Quarter: 2010Q3

REPORT INFORMATION
  Report Type: 
  Country: None (occurrence: None)
  Receive Date: 20100705
  Receipt Date: 20100623
  Transmission Date: 20110219
  Serious: Yes (Disabling)
  Sender: FDA-Public Use
  Company Number: US-MERCK-1006USA03913

PATIENT
  Age: 52 Year
  Sex: Male
  Weight: 139 kg

DRUGS (20)
  1. ZETIA [Suspect]
     Indication: BLOOD CHOLESTEROL INCREASED
     Dosage: EVERY P. M.
     Route: 048
     Dates: end: 20090801
  2. ZETIA [Suspect]
     Dosage: EVERY MORNING
     Route: 048
     Dates: start: 20061023
  3. ASPIRIN [Concomitant]
     Route: 065
  4. SIMVASTATIN [Concomitant]
     Dosage: EVERY P. M.
     Route: 065
  5. NIASPAN [Concomitant]
     Route: 065
  6. METFORMIN HYDROCHLORIDE [Concomitant]
     Route: 065
  7. METFORMIN HYDROCHLORIDE [Concomitant]
     Route: 065
  8. BYSTOLIC [Concomitant]
     Route: 065
  9. BENAZEPRIL HYDROCHLORIDE [Concomitant]
     Route: 048
  10. HYDROCHLOROTHIAZIDE [Concomitant]
     Dosage: EVERY A. M.
     Route: 065
  11. GABAPENTIN [Concomitant]
     Dosage: 1-2 AT BEDTIME
     Route: 065
  12. ACETAMINOPHEN AND HYDROCODONE BITARTRATE [Concomitant]
     Indication: SLEEP DISORDER
     Dosage: 1-2 AT BEDTIME AS-NEEDED
     Route: 065
  13. ACETAMINOPHEN AND HYDROCODONE BITARTRATE [Concomitant]
     Indication: PAIN
     Dosage: 1-2 AT BEDTIME AS-NEEDED
     Route: 065
  14. NYSTATIN AND TRIAMCINOLONE ACETONIDE [Concomitant]
     Route: 065
  15. TRAMADOL HYDROCHLORIDE [Concomitant]
     Route: 065
  16. LIPITOR [Concomitant]
     Route: 065
  17. LASIX [Concomitant]
     Route: 065
  18. POTASSIUM (UNSPECIFIED) [Concomitant]
     Route: 065
  19. BYETTA [Concomitant]
     Route: 065
  20. BYETTA [Concomitant]
     Route: 065

REACTIONS (8)
  - BLOOD CHOLESTEROL INCREASED [None]
  - DRUG INEFFECTIVE [None]
  - LIMB INJURY [None]
  - NEURALGIA [None]
  - PAIN [None]
  - POST THROMBOTIC SYNDROME [None]
  - PYELONEPHRITIS [None]
  - VASCULAR INSUFFICIENCY [None]
